FAERS Safety Report 8033661-9 (Version None)
Quarter: 2011Q4

REPORT INFORMATION
  Report Type: 
  Country: None (occurrence: None)
  Receive Date: 20111223
  Receipt Date: 20111213
  Transmission Date: 20120403
  Serious: Yes (Hospitalization, Other)
  Sender: FDA-Public Use
  Company Number: 20112P047161

PATIENT
  Age: 55 Year
  Sex: Female
  Weight: 89 kg

DRUGS (8)
  1. LEVOTHYROXINE SODIUM [Concomitant]
  2. NICARDIPINE HCL [Concomitant]
  3. DESLORATADINE [Suspect]
     Indication: SCAN
     Dosage: 5 MG;QD;PO
     Route: 048
     Dates: start: 20110830, end: 20110915
  4. DESLORATADINE [Suspect]
     Indication: PREMEDICATION
     Dosage: 5 MG;QD;PO
     Route: 048
     Dates: start: 20110830, end: 20110915
  5. PREDNISOLONE [Concomitant]
  6. PREVISCAN [Concomitant]
  7. CRESTOR [Concomitant]
  8. LANSOPRAZOLE [Concomitant]

REACTIONS (11)
  - NAUSEA [None]
  - INSOMNIA [None]
  - DRY MOUTH [None]
  - THINKING ABNORMAL [None]
  - DYSPNOEA [None]
  - VERTIGO [None]
  - DRUG HYPERSENSITIVITY [None]
  - OEDEMA [None]
  - HYPERHIDROSIS [None]
  - CRYING [None]
  - FEELING ABNORMAL [None]
